FAERS Safety Report 25849296 (Version 1)
Quarter: 2025Q3

REPORT INFORMATION
  Report Type: Spontaneous
  Country: US (occurrence: US)
  Receive Date: 20250925
  Receipt Date: 20250925
  Transmission Date: 20251020
  Serious: Yes (Other)
  Sender: BRISTOL-MYERS SQUIBB COMPANY
  Company Number: US-BRISTOL-MYERS SQUIBB COMPANY-2025-131902

PATIENT
  Age: 52 Year
  Sex: Female

DRUGS (2)
  1. POMALYST [Suspect]
     Active Substance: POMALIDOMIDE
     Indication: Plasma cell myeloma recurrent
     Dosage: 3MG/DAY, DAILY
  2. POMALYST [Suspect]
     Active Substance: POMALIDOMIDE
     Dosage: DOSE: 4MG/DAY

REACTIONS (1)
  - Neuropathy peripheral [Not Recovered/Not Resolved]
